FAERS Safety Report 22767481 (Version 2)
Quarter: 2024Q2

REPORT INFORMATION
  Report Type: Spontaneous
  Country: IT (occurrence: IT)
  Receive Date: 20230731
  Receipt Date: 20240410
  Transmission Date: 20240716
  Serious: Yes (Hospitalization, Other)
  Sender: FDA-Public Use
  Company Number: IT-BRISTOL-MYERS SQUIBB COMPANY-BMS-2019-055407

PATIENT
  Age: 82 Year
  Sex: Female

DRUGS (26)
  1. LETROZOLE [Suspect]
     Active Substance: LETROZOLE
     Indication: Breast cancer metastatic
     Dosage: 2.5 MILLIGRAM, QD
     Route: 048
     Dates: start: 20180125, end: 20190418
  2. CAPECITABINE [Suspect]
     Active Substance: CAPECITABINE
     Indication: Breast cancer metastatic
     Dosage: 500 MILLIGRAM, QD, PERSISTENT 1 DAYS
     Route: 048
     Dates: start: 20190410, end: 20190418
  3. TRASTUZUMAB [Suspect]
     Active Substance: TRASTUZUMAB
     Indication: Breast cancer metastatic
     Dosage: 480 MILLIGRAM, Q3W
     Route: 042
     Dates: start: 20170905, end: 20170905
  4. TRASTUZUMAB [Suspect]
     Active Substance: TRASTUZUMAB
     Dosage: 360 MILLIGRAM, Q3W
     Route: 042
     Dates: start: 20170927, end: 20180419
  5. TRASTUZUMAB [Suspect]
     Active Substance: TRASTUZUMAB
     Dosage: 270 MILLIGRAM, Q3W
     Route: 042
     Dates: start: 20190410, end: 20190410
  6. PACLITAXEL [Suspect]
     Active Substance: PACLITAXEL
     Indication: Breast cancer metastatic
     Dosage: 100 MILLIGRAM, QWK; MOST RECENT
     Route: 042
     Dates: start: 20170905, end: 20171024
  7. PACLITAXEL [Suspect]
     Active Substance: PACLITAXEL
     Dosage: 100 MILLIGRAM, QWK; MOST RECENT
     Route: 042
     Dates: start: 20171110, end: 20180119
  8. PERTUZUMAB [Suspect]
     Active Substance: PERTUZUMAB
     Indication: Breast cancer metastatic
     Dosage: 840 MILLIGRAM, Q3W
     Route: 042
     Dates: start: 20170927, end: 20180419
  9. PERTUZUMAB [Suspect]
     Active Substance: PERTUZUMAB
     Dosage: 840 MILLIGRAM, Q3W
     Route: 042
     Dates: start: 20170905, end: 20170905
  10. METFORMIN [Concomitant]
     Active Substance: METFORMIN HYDROCHLORIDE
     Indication: Product used for unknown indication
     Dosage: 500 MILLIGRAM, QD
     Route: 048
     Dates: end: 20190713
  11. PREDNISONE [Concomitant]
     Active Substance: PREDNISONE
     Dosage: 5 MILLIGRAM, QD
     Route: 048
     Dates: start: 20180430
  12. RANITIDINE [Concomitant]
     Active Substance: RANITIDINE
     Dosage: 100 MILLIGRAM, Q3W
     Route: 065
     Dates: start: 20171129, end: 20180419
  13. RANITIDINE [Concomitant]
     Active Substance: RANITIDINE
     Dosage: UNK
     Route: 065
     Dates: start: 20171129, end: 20180419
  14. COUMADIN [Concomitant]
     Active Substance: WARFARIN SODIUM
     Indication: Product used for unknown indication
     Dosage: UNK
     Route: 048
     Dates: start: 20190713
  15. POTASSIUM CHLORIDE [Concomitant]
     Active Substance: POTASSIUM CHLORIDE
     Dosage: UNK
     Route: 048
     Dates: end: 20180609
  16. TAPAZOLE [Concomitant]
     Active Substance: METHIMAZOLE
     Indication: Product used for unknown indication
     Dosage: 2.5 MILLIGRAM, QD
     Route: 048
     Dates: end: 20190713
  17. ZOFRAN [Concomitant]
     Active Substance: ONDANSETRON HYDROCHLORIDE
     Indication: Product used for unknown indication
     Dosage: 8 MILLIGRAM, Q3W
     Route: 042
     Dates: start: 20171010, end: 20180419
  18. CHLORPHENIRAMINE MALEATE [Concomitant]
     Active Substance: CHLORPHENIRAMINE MALEATE
     Dosage: 10 MILLIGRAM, Q3W
     Route: 042
     Dates: start: 20171010, end: 20180419
  19. LEVETIRACETAM [Concomitant]
     Active Substance: LEVETIRACETAM
     Indication: Product used for unknown indication
     Dosage: 500 MILLIGRAM, QD
     Route: 048
     Dates: end: 20190713
  20. ATORVASTATIN [Concomitant]
     Active Substance: ATORVASTATIN
     Dosage: UNK
     Route: 065
     Dates: start: 20180516
  21. LANSOPRAZOLE [Concomitant]
     Active Substance: LANSOPRAZOLE
     Dosage: ONGOING = CHECKED
     Route: 065
     Dates: start: 20180430
  22. DEXAMETHASONE [Concomitant]
     Active Substance: DEXAMETHASONE
     Indication: Product used for unknown indication
     Dosage: 8 MILLIGRAM, Q3W
     Route: 065
     Dates: start: 20171010, end: 20180119
  23. FLECAINIDE [Concomitant]
     Active Substance: FLECAINIDE
     Indication: Product used for unknown indication
     Dosage: 100 MILLIGRAM, QD
     Route: 065
  24. CHOLECALCIFEROL [Concomitant]
     Active Substance: CHOLECALCIFEROL
     Indication: Product used for unknown indication
     Dosage: UNK
     Route: 048
  25. BISOPROLOL [Concomitant]
     Active Substance: BISOPROLOL\BISOPROLOL FUMARATE
     Indication: Product used for unknown indication
     Dosage: 2.5 MILLIGRAM, QD
     Route: 065
     Dates: end: 20190418
  26. FUROSEMIDE [Concomitant]
     Active Substance: FUROSEMIDE
     Dosage: 25 MILLIGRAM, QD
     Route: 048
     Dates: start: 20190410, end: 20190418

REACTIONS (3)
  - Asthenia [Recovered/Resolved]
  - Decreased appetite [Recovered/Resolved]
  - Neuropathy peripheral [Recovered/Resolved]

NARRATIVE: CASE EVENT DATE: 20180430
